FAERS Safety Report 5716123-0 (Version None)
Quarter: 2008Q2

REPORT INFORMATION
  Report Type: 
  Country: None (occurrence: None)
  Receive Date: 20080423
  Receipt Date: 20080423
  Transmission Date: 20081010
  Serious: No
  Sender: FDA-Public Use
  Company Number: None

PATIENT
  Age: 19 Month
  Sex: Male
  Weight: 11.1131 kg

DRUGS (1)
  1. LIDOCAINE [Suspect]

REACTIONS (1)
  - URTICARIA [None]
